FAERS Safety Report 4882315-6 (Version None)
Quarter: 2006Q1

REPORT INFORMATION
  Report Type: 
  Country: None (occurrence: None)
  Receive Date: 20060112
  Receipt Date: 20051228
  Transmission Date: 20060701
  Serious: Yes (Hospitalization)
  Sender: FDA-Public Use
  Company Number: 2005-0009048

PATIENT
  Age: 35 Year
  Sex: Female

DRUGS (5)
  1. VIREAD [Suspect]
     Indication: HIV INFECTION
  2. AMBISOME [Suspect]
     Indication: FUNGAL INFECTION
  3. KALETRA [Concomitant]
  4. INVIRASE [Concomitant]
  5. ZIDOVUDINE [Concomitant]

REACTIONS (4)
  - CARDIAC DISORDER [None]
  - DEHYDRATION [None]
  - NAUSEA [None]
  - VOMITING [None]
